FAERS Safety Report 7670739-3 (Version None)
Quarter: 2011Q3

REPORT INFORMATION
  Report Type: 
  Country: None (occurrence: None)
  Receive Date: 20110809
  Receipt Date: 20110801
  Transmission Date: 20111222
  Serious: Yes (Life-Threatening)
  Sender: FDA-Public Use
  Company Number: FR-BRISTOL-MYERS SQUIBB COMPANY-15948094

PATIENT
  Age: 74 Year
  Sex: Male

DRUGS (6)
  1. PLAVIX [Suspect]
     Route: 048
  2. LESCOL [Suspect]
     Route: 048
  3. REPAGLINIDE [Suspect]
     Route: 048
  4. GLUCOPHAGE [Suspect]
     Route: 048
  5. INDAPAMIDE [Suspect]
     Route: 048
  6. ACTOS [Suspect]
     Route: 048
     Dates: start: 20071030, end: 20101207

REACTIONS (1)
  - BLADDER CANCER [None]
